FAERS Safety Report 8494588 (Version 2)
Quarter: 2012Q4

REPORT INFORMATION
  Report Type: 
  Country: JP (occurrence: JP)
  Receive Date: 20120404
  Receipt Date: 20121010
  Transmission Date: 20130627
  Serious: Yes (Hospitalization)
  Sender: FDA-Public Use
  Company Number: PHHY2012JP027292

PATIENT
  Age: 64 Year
  Sex: Female

DRUGS (1)
  1. MEXILETINE [Suspect]

REACTIONS (9)
  - Drug reaction with eosinophilia and systemic symptoms [Recovered/Resolved]
  - Rash maculo-papular [Recovered/Resolved]
  - Pyrexia [Recovered/Resolved]
  - Purpura [Recovered/Resolved]
  - Eosinophilia [Recovered/Resolved]
  - Erythema [Recovered/Resolved]
  - Hepatic function abnormal [Recovered/Resolved]
  - Leukocytosis [Recovered/Resolved]
  - Human herpesvirus 6 infection [Recovered/Resolved]
